FAERS Safety Report 16416405 (Version 2)
Quarter: 2019Q3

REPORT INFORMATION
  Report Type: Spontaneous
  Country: US (occurrence: US)
  Receive Date: 20190611
  Receipt Date: 20190719
  Transmission Date: 20191004
  Serious: Yes (Other)
  Sender: FDA-Public Use
  Company Number: US-AKORN PHARMACEUTICALS-2019AKN01204

PATIENT
  Age: 18 Year
  Sex: Female

DRUGS (2)
  1. MYORISAN [Suspect]
     Active Substance: ISOTRETINOIN
     Indication: ACNE CYSTIC
     Dosage: 40 MG, 2X/DAY (MONDAY, WEDNESDAY, FRIDAY)
     Dates: start: 20190506, end: 20190522
  2. MYORISAN [Suspect]
     Active Substance: ISOTRETINOIN
     Dosage: 40 MG, 1X/DAY (SUNDAY, TUESDAY, THURSDAY, SATURDAY)
     Dates: start: 20190507, end: 20190521

REACTIONS (3)
  - Obsessive-compulsive disorder [Unknown]
  - Mood altered [Unknown]
  - Off label use [Recovered/Resolved]

NARRATIVE: CASE EVENT DATE: 20190506
